FAERS Safety Report 7533694-2 (Version None)
Quarter: 2011Q2

REPORT INFORMATION
  Report Type: 
  Country: None (occurrence: None)
  Receive Date: 20110608
  Receipt Date: 20110531
  Transmission Date: 20111010
  Serious: Yes (Life-Threatening, Hospitalization)
  Sender: FDA-Public Use
  Company Number: CN-CELGENEUS-035-21660-11053778

PATIENT
  Age: 75 Year
  Sex: Male

DRUGS (2)
  1. ABRAXANE [Suspect]
     Dosage: 300 MILLIGRAM
     Route: 051
     Dates: start: 20110523, end: 20110523
  2. CAPECITABINE [Concomitant]
     Route: 065

REACTIONS (1)
  - GASTRIC PERFORATION [None]
